FAERS Safety Report 6423156-8 (Version None)
Quarter: 2009Q4

REPORT INFORMATION
  Report Type: 
  Country: None (occurrence: None)
  Receive Date: 20091102
  Receipt Date: 20090930
  Transmission Date: 20100525
  Serious: No
  Sender: FDA-Public Use
  Company Number: US-BAYER-200934905NA

PATIENT
  Age: 22 Year
  Sex: Female
  Weight: 84 kg

DRUGS (4)
  1. MIRENA [Suspect]
     Indication: CONTRACEPTION
     Dosage: CONTINUOUS
     Route: 015
     Dates: start: 20081217
  2. ALBUTEROL [Concomitant]
  3. IBUPROFEN [Concomitant]
  4. TYLENOL [Concomitant]

REACTIONS (2)
  - ABDOMINAL PAIN LOWER [None]
  - VAGINAL HAEMORRHAGE [None]
